FAERS Safety Report 6946155-6 (Version None)
Quarter: 2010Q3

REPORT INFORMATION
  Report Type: 
  Country: None (occurrence: None)
  Receive Date: 20100827
  Receipt Date: 20100823
  Transmission Date: 20110219
  Serious: Yes (Death)
  Sender: FDA-Public Use
  Company Number: US-GILEAD-2010-0031267

PATIENT
  Sex: Female
  Weight: 71.278 kg

DRUGS (19)
  1. LETAIRIS [Suspect]
     Indication: PULMONARY ARTERIAL HYPERTENSION
     Route: 048
     Dates: start: 20090514
  2. PULMICORT [Concomitant]
  3. DILTIAZEM [Concomitant]
  4. LOPRESSOR [Concomitant]
  5. PREDNISONE [Concomitant]
  6. ASPIRIN [Concomitant]
  7. COUMADIN [Concomitant]
  8. FLOMAX [Concomitant]
  9. TRENTAL [Concomitant]
  10. BACTRIM DS [Concomitant]
  11. ZOLOFT [Concomitant]
  12. XANAX [Concomitant]
  13. FOSAMAX [Concomitant]
  14. CENTRUM SILVER [Concomitant]
  15. CALTRATE [Concomitant]
  16. ELAVIL [Concomitant]
  17. PRILOSEC [Concomitant]
  18. AMBIEN [Concomitant]
  19. SYNTHROID [Concomitant]

REACTIONS (1)
  - DEATH [None]
